FAERS Safety Report 5201649-9 (Version None)
Quarter: 2007Q1

REPORT INFORMATION
  Report Type: 
  Country: None (occurrence: None)
  Receive Date: 20070108
  Receipt Date: 20070105
  Transmission Date: 20070707
  Serious: Yes (Other)
  Sender: FDA-Public Use
  Company Number: CH-ROXANE LABORATORIES, INC-2006-BP-14465RO

PATIENT
  Age: 47 Year
  Sex: Female
  Weight: 69 kg

DRUGS (1)
  1. CLARITHROMYCIN [Suspect]
     Indication: PNEUMONIA
     Dosage: 6 TABLETS
     Route: 048

REACTIONS (4)
  - LEUKOCYTOCLASTIC VASCULITIS [None]
  - PURPURA [None]
  - SKIN NECROSIS [None]
  - SKIN ULCER [None]
